FAERS Safety Report 11247562 (Version 14)
Quarter: 2017Q4

REPORT INFORMATION
  Report Type: Report from Study
  Country: CA (occurrence: CA)
  Receive Date: 20150708
  Receipt Date: 20171202
  Transmission Date: 20180320
  Serious: Yes (Other)
  Sender: FDA-Public Use
  Company Number: CA-ROCHE-1425380

PATIENT
  Age: 69 Year
  Sex: Female
  Weight: 79 kg

DRUGS (10)
  1. ACTEMRA [Suspect]
     Active Substance: TOCILIZUMAB
     Route: 042
     Dates: start: 20121220
  2. FOLIC ACID. [Concomitant]
     Active Substance: FOLIC ACID
  3. ACTEMRA [Suspect]
     Active Substance: TOCILIZUMAB
     Dosage: DATE OF FIRST PIR
     Route: 042
     Dates: start: 20110704
  4. ACTEMRA [Suspect]
     Active Substance: TOCILIZUMAB
     Route: 042
     Dates: start: 20140116
  5. VASOTEC (CANADA) [Concomitant]
  6. ACTEMRA [Suspect]
     Active Substance: TOCILIZUMAB
     Indication: RHEUMATOID ARTHRITIS
     Dosage: UNKNOWN DOSE
     Route: 042
     Dates: end: 20110531
  7. ACTEMRA [Suspect]
     Active Substance: TOCILIZUMAB
     Route: 042
     Dates: start: 20140702
  8. LIPITOR [Concomitant]
     Active Substance: ATORVASTATIN CALCIUM
  9. METHOTREXATE. [Concomitant]
     Active Substance: METHOTREXATE
  10. GABAPENTIN. [Concomitant]
     Active Substance: GABAPENTIN

REACTIONS (11)
  - Neuritis [Unknown]
  - Ear pain [Recovered/Resolved]
  - Oxygen saturation decreased [Unknown]
  - Nasopharyngitis [Recovering/Resolving]
  - Sinusitis [Recovering/Resolving]
  - Weight increased [Unknown]
  - Throat irritation [Not Recovered/Not Resolved]
  - Blood pressure increased [Unknown]
  - Sciatica [Recovering/Resolving]
  - Hypersensitivity [Recovering/Resolving]
  - Blood pressure increased [Unknown]

NARRATIVE: CASE EVENT DATE: 2015
